FAERS Safety Report 6501538-3 (Version None)
Quarter: 2009Q4

REPORT INFORMATION
  Report Type: 
  Country: None (occurrence: None)
  Receive Date: 20091216
  Receipt Date: 20091210
  Transmission Date: 20100525
  Serious: Yes (Other)
  Sender: FDA-Public Use
  Company Number: B0607806A

PATIENT
  Sex: Female

DRUGS (2)
  1. MODACIN [Suspect]
     Indication: NEPHRITIS
     Dosage: 1G TWICE PER DAY
     Route: 042
     Dates: start: 20091006, end: 20091010
  2. DORIPENEM [Concomitant]
     Indication: NEPHRITIS
     Dosage: .5MG PER DAY
     Route: 065
     Dates: start: 20091010, end: 20091020

REACTIONS (1)
  - ALOPECIA [None]
